FAERS Safety Report 18599374 (Version 1)
Quarter: 2020Q4

REPORT INFORMATION
  Report Type: Spontaneous
  Country: US (occurrence: US)
  Receive Date: 20201209
  Receipt Date: 20201209
  Transmission Date: 20210114
  Serious: No
  Sender: FDA-Public Use
  Company Number: None

PATIENT
  Age: 87 Year
  Sex: Female
  Weight: 68.04 kg

DRUGS (7)
  1. LUMAGAN [Concomitant]
  2. B-12 TABS [Concomitant]
  3. DORZOLNMIDE HCL [Concomitant]
  4. RHOPRESSA [Suspect]
     Active Substance: NETARSUDIL MESYLATE
     Indication: GLAUCOMA
     Dosage: ?          OTHER STRENGTH:0.02% SOL;QUANTITY:1 DF DOSAGE FORM;?
     Route: 047
     Dates: start: 20200907, end: 20201016
  5. LEVOTHYROXINE. [Concomitant]
     Active Substance: LEVOTHYROXINE
  6. SIMVASTATIN. [Concomitant]
     Active Substance: SIMVASTATIN
  7. TIMOL [Concomitant]

REACTIONS (3)
  - Pruritus [None]
  - Swelling of eyelid [None]
  - Erythema of eyelid [None]

NARRATIVE: CASE EVENT DATE: 20201008
